FAERS Safety Report 15486308 (Version 1)
Quarter: 2018Q4

REPORT INFORMATION
  Report Type: Spontaneous
  Country: IE (occurrence: IE)
  Receive Date: 20181011
  Receipt Date: 20181011
  Transmission Date: 20190205
  Serious: Yes (Hospitalization)
  Sender: FDA-Public Use
  Company Number: IE-009507513-1810IRL003843

PATIENT
  Age: 78 Year
  Sex: Female

DRUGS (2)
  1. FOSAVANCE [Suspect]
     Active Substance: ALENDRONATE SODIUM\CHOLECALCIFEROL
     Indication: OSTEOPOROSIS
     Dosage: 70 MG, QW
     Route: 048
  2. CLARITHROMYCIN. [Concomitant]
     Active Substance: CLARITHROMYCIN
     Indication: URINARY TRACT INFECTION
     Dosage: UNK

REACTIONS (4)
  - Urticaria [Recovering/Resolving]
  - Blister [Recovering/Resolving]
  - Drug reaction with eosinophilia and systemic symptoms [Recovering/Resolving]
  - Rash generalised [Recovering/Resolving]
